FAERS Safety Report 8287646-8 (Version None)
Quarter: 2012Q2

REPORT INFORMATION
  Report Type: 
  Country: None (occurrence: None)
  Receive Date: 20120416
  Receipt Date: 20120411
  Transmission Date: 20120825
  Serious: Yes (Life-Threatening, Hospitalization, Other)
  Sender: FDA-Public Use
  Company Number: PHHY2011JP50287

PATIENT
  Age: 9 Year
  Sex: Female

DRUGS (8)
  1. GLEEVEC [Suspect]
     Indication: ACUTE LYMPHOCYTIC LEUKAEMIA
     Dosage: 200 MG, DAILY
     Route: 048
     Dates: start: 20110115
  2. SPRYCEL [Concomitant]
  3. ACYCLOVIR [Concomitant]
     Indication: PROPHYLAXIS
     Route: 048
  4. CHEMOTHERAPEUTICS NOS [Concomitant]
  5. ZOVIRAX [Concomitant]
     Indication: PROPHYLAXIS
     Dosage: 200 MG, UNK
     Route: 048
     Dates: start: 20110519
  6. CYCLOSPORINE [Concomitant]
     Indication: PROPHYLAXIS AGAINST GRAFT VERSUS HOST DISEASE
     Route: 048
  7. COTRIM [Concomitant]
     Indication: PROPHYLAXIS
     Dosage: 2 G, UNK
     Route: 048
  8. HALIZON [Concomitant]
     Indication: PROPHYLAXIS
     Dosage: 4 ML, UNK
     Route: 048

REACTIONS (11)
  - BONE MARROW DISORDER [None]
  - ASPARTATE AMINOTRANSFERASE INCREASED [None]
  - INFLAMMATION [None]
  - ALANINE AMINOTRANSFERASE INCREASED [None]
  - COAGULOPATHY [None]
  - EOSINOPHIL COUNT INCREASED [None]
  - ALTERED STATE OF CONSCIOUSNESS [None]
  - NAUSEA [None]
  - HYPERBILIRUBINAEMIA [None]
  - HEPATITIS FULMINANT [None]
  - RED BLOOD CELL COUNT DECREASED [None]
